FAERS Safety Report 5209022-4 (Version None)
Quarter: 2007Q1

REPORT INFORMATION
  Report Type: 
  Country: None (occurrence: None)
  Receive Date: 20070116
  Receipt Date: 20070109
  Transmission Date: 20070707
  Serious: Yes (Disabling, Other)
  Sender: FDA-Public Use
  Company Number: BR-MERCK-0701BRA00026

PATIENT
  Age: 55 Year
  Sex: Female

DRUGS (3)
  1. COZAAR [Suspect]
     Indication: HYPERTENSION
     Route: 048
     Dates: end: 20060101
  2. METFORMIN HYDROCHLORIDE [Concomitant]
     Indication: BLOOD GLUCOSE INCREASED
     Route: 048
  3. NIMESULIDE [Concomitant]
     Indication: ACUTE SINUSITIS
     Route: 048

REACTIONS (2)
  - HYPERTENSIVE CRISIS [None]
  - ISCHAEMIA [None]
